FAERS Safety Report 6904880-7 (Version None)
Quarter: 2010Q3

REPORT INFORMATION
  Report Type: 
  Country: None (occurrence: None)
  Receive Date: 20100804
  Receipt Date: 20090724
  Transmission Date: 20110219
  Serious: No
  Sender: FDA-Public Use
  Company Number: US-PFIZER INC-2009204663

PATIENT
  Sex: Female
  Weight: 58.5 kg

DRUGS (1)
  1. LYRICA [Suspect]
     Indication: NEUROPATHY PERIPHERAL
     Dosage: 100 MG, 3X/DAY

REACTIONS (9)
  - BURNING SENSATION [None]
  - DRUG INEFFECTIVE [None]
  - DRY MOUTH [None]
  - ERYTHEMA [None]
  - FOOT DEFORMITY [None]
  - HYPOAESTHESIA [None]
  - MOBILITY DECREASED [None]
  - OEDEMA PERIPHERAL [None]
  - PAIN [None]
